FAERS Safety Report 25391394 (Version 2)
Quarter: 2025Q3

REPORT INFORMATION
  Report Type: Spontaneous
  Country: JP (occurrence: JP)
  Receive Date: 20250603
  Receipt Date: 20250702
  Transmission Date: 20251020
  Serious: Yes (Death, Hospitalization)
  Sender: PFIZER
  Company Number: JP-PFIZER INC-PV202500065755

PATIENT
  Age: 85 Year
  Sex: Male

DRUGS (1)
  1. TAFAMIDIS [Suspect]
     Active Substance: TAFAMIDIS
     Indication: Cardiac amyloidosis
     Dosage: 61 MG, DAILY
     Route: 048
     Dates: start: 20230209

REACTIONS (2)
  - Cardiac amyloidosis [Fatal]
  - Disease progression [Fatal]

NARRATIVE: CASE EVENT DATE: 20250526
